FAERS Safety Report 10408899 (Version 1)
Quarter: 2014Q1

REPORT INFORMATION
  Report Type: Spontaneous
  Country: US (occurrence: None)
  Receive Date: 20130628
  Receipt Date: 20130628
  Transmission Date: 20141002
  Serious: No
  Sender: FDA-Public Use
  Company Number: 201011H

PATIENT
  Age: 20 Year
  Sex: Female
  Weight: 147 kg

DRUGS (1)
  1. BUTORPHANOL TARTRATE [Suspect]
     Indication: PAIN
     Route: 042
     Dates: start: 20090225, end: 20090225

REACTIONS (3)
  - Throat irritation [None]
  - Agitation [None]
  - Pruritus [None]
